FAERS Safety Report 18441013 (Version 4)
Quarter: 2022Q4

REPORT INFORMATION
  Report Type: Spontaneous
  Country: US (occurrence: US)
  Receive Date: 20201029
  Receipt Date: 20221018
  Transmission Date: 20230113
  Serious: Yes (Other)
  Sender: FDA-Public Use
  Company Number: US-PFIZER INC-2019280135

PATIENT
  Age: 51 Year
  Sex: Male
  Weight: 90.5 kg

DRUGS (2)
  1. RAPAMUNE [Suspect]
     Active Substance: SIROLIMUS
     Indication: Heart transplant
     Dosage: 1 MG, 1X/DAY
     Route: 048
     Dates: start: 2016
  2. TACROLIMUS [Concomitant]
     Active Substance: TACROLIMUS
     Dosage: 0.5 MG, 2X/DAY
     Route: 048
     Dates: start: 2011

REACTIONS (2)
  - Abdominal hernia [Recovered/Resolved]
  - Off label use [Unknown]

NARRATIVE: CASE EVENT DATE: 20160101
